FAERS Safety Report 20938990 (Version 1)
Quarter: 2022Q2

REPORT INFORMATION
  Report Type: Report from Study
  Country: SE (occurrence: SE)
  Receive Date: 20220609
  Receipt Date: 20220609
  Transmission Date: 20220720
  Serious: Yes (Death)
  Sender: FDA-Public Use
  Company Number: SE-MYLANLABS-2022M1044043

PATIENT
  Sex: Female

DRUGS (13)
  1. CIPROFLOXACIN [Suspect]
     Active Substance: CIPROFLOXACIN
     Indication: Pulmonary tuberculosis
     Dosage: UNK
  2. CLARITHROMYCIN [Suspect]
     Active Substance: CLARITHROMYCIN
     Indication: Pulmonary tuberculosis
     Dosage: UNK
  3. RIFAMPIN [Suspect]
     Active Substance: RIFAMPIN
     Indication: Pulmonary tuberculosis
     Dosage: UNK
  4. ETHAMBUTOL [Suspect]
     Active Substance: ETHAMBUTOL HYDROCHLORIDE
     Indication: Pulmonary tuberculosis
     Dosage: UNK
  5. STREPTOMYCIN [Suspect]
     Active Substance: STREPTOMYCIN SULFATE
     Indication: Pulmonary tuberculosis
     Dosage: UNK
  6. AMIKACIN [Suspect]
     Active Substance: AMIKACIN
     Indication: Pulmonary tuberculosis
     Dosage: UNK
  7. CLOFAZIMINE [Suspect]
     Active Substance: CLOFAZIMINE
     Indication: Pulmonary tuberculosis
     Dosage: UNK
  8. ETHIONAMIDE [Suspect]
     Active Substance: ETHIONAMIDE
     Indication: Pulmonary tuberculosis
     Dosage: UNK
  9. PROTIONAMIDE [Suspect]
     Active Substance: PROTIONAMIDE
     Indication: Pulmonary tuberculosis
     Dosage: UNK
  10. RIFABUTIN [Suspect]
     Active Substance: RIFABUTIN
     Indication: Pulmonary tuberculosis
     Dosage: UNK
  11. CAPREOMYCIN [Suspect]
     Active Substance: CAPREOMYCIN
     Indication: Pulmonary tuberculosis
     Dosage: UNK
  12. ISONIAZID [Concomitant]
     Active Substance: ISONIAZID
     Indication: Pulmonary tuberculosis
     Dosage: UNK
  13. PYRAZINAMIDE [Concomitant]
     Active Substance: PYRAZINAMIDE
     Indication: Pulmonary tuberculosis
     Dosage: UNK

REACTIONS (1)
  - Pathogen resistance [Fatal]
